FAERS Safety Report 12901569 (Version 1)
Quarter: 2016Q4

REPORT INFORMATION
  Report Type: Report from Study
  Country: US (occurrence: US)
  Receive Date: 20161102
  Receipt Date: 20161102
  Transmission Date: 20170207
  Serious: No
  Sender: FDA-Public Use
  Company Number: US-AMGEN-USASL2016150990

PATIENT
  Age: 82 Year
  Sex: Female

DRUGS (2)
  1. ENBREL [Suspect]
     Active Substance: ETANERCEPT
     Indication: RHEUMATOID ARTHRITIS
     Dosage: 25 MG, UNK
     Route: 065
     Dates: start: 19991101
  2. ENBREL [Suspect]
     Active Substance: ETANERCEPT
     Dosage: 25 UNK, UNK
     Route: 065
     Dates: start: 2016

REACTIONS (2)
  - Unevaluable event [Unknown]
  - Hypoacusis [Not Recovered/Not Resolved]
